FAERS Safety Report 4973247-3 (Version None)
Quarter: 2006Q2

REPORT INFORMATION
  Report Type: 
  Country: None (occurrence: None)
  Receive Date: 20060414
  Receipt Date: 20051215
  Transmission Date: 20061013
  Serious: Yes (Hospitalization)
  Sender: FDA-Public Use
  Company Number: US-MERCK-0512USA02576

PATIENT
  Age: 71 Year
  Sex: Male
  Weight: 95 kg

DRUGS (15)
  1. VIOXX [Suspect]
     Indication: SPONDYLITIS
     Route: 048
     Dates: start: 20020211, end: 20031208
  2. ALLEGRA [Concomitant]
     Route: 065
  3. ALPRAZOLAM [Concomitant]
     Route: 065
  4. ASPIRIN [Concomitant]
     Route: 065
  5. CARAC [Concomitant]
     Route: 065
  6. DETROL LA [Concomitant]
     Route: 065
  7. DIOVAN [Concomitant]
     Route: 065
  8. DITROPAN [Concomitant]
     Route: 065
  9. DURATUSS G [Concomitant]
     Route: 065
  10. FAMOTIDINE [Concomitant]
     Route: 065
  11. MICARDIS [Concomitant]
     Route: 065
  12. PROPRANOLOL HYDROCHLORIDE [Concomitant]
     Route: 065
  13. ACETAMINOPHEN AND PROPOXYPHENE NAPSYLATE [Concomitant]
     Route: 065
  14. VIAGRA [Concomitant]
     Route: 065
  15. ZITHROMAX [Concomitant]
     Route: 065

REACTIONS (17)
  - ANGINA PECTORIS [None]
  - ANXIETY [None]
  - BACTERIAL INFECTION [None]
  - BLADDER DISORDER [None]
  - BLOOD TRIGLYCERIDES INCREASED [None]
  - DIABETES MELLITUS NON-INSULIN-DEPENDENT [None]
  - DYSPNOEA [None]
  - HEART RATE IRREGULAR [None]
  - HYPERKERATOSIS [None]
  - HYPERSENSITIVITY [None]
  - LOW DENSITY LIPOPROTEIN INCREASED [None]
  - MIGRAINE [None]
  - MYOCARDIAL INFARCTION [None]
  - OEDEMA [None]
  - ROTATOR CUFF SYNDROME [None]
  - SLEEP APNOEA SYNDROME [None]
  - THYROID DISORDER [None]
